FAERS Safety Report 20565483 (Version 1)
Quarter: 2022Q1

REPORT INFORMATION
  Report Type: Spontaneous
  Country: US (occurrence: None)
  Receive Date: 20220307
  Receipt Date: 20220307
  Transmission Date: 20220423
  Serious: Yes (Death)
  Sender: FDA-Public Use
  Company Number: None

PATIENT
  Sex: Male

DRUGS (12)
  1. XELJANZ XR [Suspect]
     Active Substance: TOFACITINIB CITRATE
     Indication: Rheumatoid arthritis
     Dosage: FREQUENCY : DAILY;?
     Route: 048
     Dates: start: 20210525
  2. AMLODI PINE TAB 10MG [Concomitant]
  3. ATORVASTATIN  TAB [Concomitant]
  4. AZITHROMYCIN [Concomitant]
     Active Substance: AZITHROMYCIN
  5. ENBREL MINI INJ [Concomitant]
  6. LIPITOR TAB [Concomitant]
  7. LISINOP/HCTZ TAB [Concomitant]
  8. LISINOPRIL TAB [Concomitant]
  9. METHOTREXATE  INJ [Concomitant]
  10. METOPROLOL TARTRATE [Concomitant]
     Active Substance: METOPROLOL TARTRATE
  11. RAYOS [Concomitant]
  12. XELJANZ XR [Concomitant]
     Active Substance: TOFACITINIB CITRATE

REACTIONS (1)
  - Death [None]
